FAERS Safety Report 8227279-2 (Version None)
Quarter: 2012Q1

REPORT INFORMATION
  Report Type: 
  Country: None (occurrence: None)
  Receive Date: 20120322
  Receipt Date: 20120314
  Transmission Date: 20120608
  Serious: Yes (Other)
  Sender: FDA-Public Use
  Company Number: PHEH2012US005978

PATIENT
  Sex: Female

DRUGS (2)
  1. RECLAST [Suspect]
     Dosage: UNK
     Route: 042
  2. ACETAMINOPHEN [Concomitant]

REACTIONS (6)
  - EYE PAIN [None]
  - FEELING ABNORMAL [None]
  - JOINT SWELLING [None]
  - ARTHRALGIA [None]
  - ANGLE CLOSURE GLAUCOMA [None]
  - PAIN [None]
